FAERS Safety Report 12393987 (Version 2)
Quarter: 2016Q2

REPORT INFORMATION
  Report Type: Report from Study
  Country: CA (occurrence: CA)
  Receive Date: 20160523
  Receipt Date: 20160531
  Transmission Date: 20160815
  Serious: Yes (Hospitalization, Other)
  Sender: FDA-Public Use
  Company Number: CA-JNJFOC-20160517446

PATIENT
  Age: 32 Year
  Sex: Male
  Weight: 72 kg

DRUGS (1)
  1. REMICADE [Suspect]
     Active Substance: INFLIXIMAB
     Indication: CROHN^S DISEASE
     Route: 042
     Dates: start: 2009

REACTIONS (4)
  - Therapeutic response decreased [Not Recovered/Not Resolved]
  - Weight decreased [Not Recovered/Not Resolved]
  - Surgery [Unknown]
  - Malnutrition [Not Recovered/Not Resolved]

NARRATIVE: CASE EVENT DATE: 20160516
